FAERS Safety Report 19468006 (Version 1)
Quarter: 2021Q2

REPORT INFORMATION
  Report Type: Spontaneous
  Country: FR (occurrence: FR)
  Receive Date: 20210628
  Receipt Date: 20210628
  Transmission Date: 20210717
  Serious: Yes (Other)
  Sender: FDA-Public Use
  Company Number: FR-ACCORD-229705

PATIENT
  Age: 101 Year
  Sex: Female
  Weight: 68.1 kg

DRUGS (8)
  1. EFFIZINC [Concomitant]
     Active Substance: ZINC GLUCONATE
     Route: 048
     Dates: start: 202101
  2. CETIRIZINE [Concomitant]
     Active Substance: CETIRIZINE HYDROCHLORIDE
     Route: 048
  3. METHOTREXATE. [Suspect]
     Active Substance: METHOTREXATE
     Indication: ECZEMA
     Route: 058
     Dates: start: 20210416, end: 20210430
  4. QVAR [Concomitant]
     Active Substance: BECLOMETHASONE DIPROPIONATE
     Dosage: 100 MICROGRAMS/DOSE
     Route: 055
  5. LETROZOLE. [Concomitant]
     Active Substance: LETROZOLE
     Route: 048
     Dates: start: 2018
  6. FUROSEMIDE. [Concomitant]
     Active Substance: FUROSEMIDE
     Route: 048
  7. BETNEVAL [Concomitant]
     Active Substance: BETAMETHASONE VALERATE
     Dosage: 0.1 PERCENT
     Route: 003
     Dates: start: 2020
  8. LEVOTHYROXINE. [Concomitant]
     Active Substance: LEVOTHYROXINE
     Route: 048
     Dates: start: 2020

REACTIONS (3)
  - Lymphopenia [Recovered/Resolved]
  - Thrombocytopenia [Recovered/Resolved]
  - Haemoglobin decreased [Not Recovered/Not Resolved]

NARRATIVE: CASE EVENT DATE: 20210429
